FAERS Safety Report 7964269-9 (Version None)
Quarter: 2011Q4

REPORT INFORMATION
  Report Type: 
  Country: None (occurrence: None)
  Receive Date: 20111206
  Receipt Date: 20111130
  Transmission Date: 20120403
  Serious: Yes (Hospitalization)
  Sender: FDA-Public Use
  Company Number: 2011MA017005

PATIENT
  Age: 61 Year
  Sex: Female

DRUGS (4)
  1. ALPRAZOLAM [Concomitant]
  2. MIRTAZAPINE [Suspect]
     Indication: DEPRESSION
  3. TETRAZEPAM [Concomitant]
  4. TIBOLONE [Concomitant]

REACTIONS (4)
  - JUGULAR VEIN THROMBOSIS [None]
  - SUPERIOR VENA CAVA SYNDROME [None]
  - MEDIASTINAL FIBROSIS [None]
  - PLEURAL EFFUSION [None]
